FAERS Safety Report 6897813-3 (Version None)
Quarter: 2010Q3

REPORT INFORMATION
  Report Type: 
  Country: None (occurrence: None)
  Receive Date: 20100802
  Receipt Date: 20070725
  Transmission Date: 20110219
  Serious: No
  Sender: FDA-Public Use
  Company Number: US-PFIZER INC-2007062061

PATIENT
  Age: 18 Year
  Sex: Female

DRUGS (1)
  1. LYRICA [Suspect]
     Dates: start: 20070718

REACTIONS (2)
  - ARTHRALGIA [None]
  - MUSCLE SPASMS [None]
